FAERS Safety Report 25439512 (Version 1)
Quarter: 2025Q2

REPORT INFORMATION
  Report Type: Report from Study
  Country: US (occurrence: US)
  Receive Date: 20250616
  Receipt Date: 20250616
  Transmission Date: 20250716
  Serious: Yes (Other)
  Sender: JOHNSON AND JOHNSON
  Company Number: US-JNJFOC-20250606825

PATIENT
  Sex: Male

DRUGS (1)
  1. SPRAVATO [Suspect]
     Active Substance: ESKETAMINE
     Indication: Depression
     Route: 045

REACTIONS (7)
  - Suicidal ideation [Unknown]
  - Hallucinations, mixed [Unknown]
  - Accidental overdose [Unknown]
  - Insomnia [Unknown]
  - Meniscus injury [Unknown]
  - Fall [Unknown]
  - Back disorder [Unknown]
